FAERS Safety Report 16444719 (Version 1)
Quarter: 2019Q3

REPORT INFORMATION
  Report Type: Spontaneous
  Country: US (occurrence: US)
  Receive Date: 20190618
  Receipt Date: 20190618
  Transmission Date: 20191004
  Serious: No
  Sender: FDA-Public Use
  Company Number: None

PATIENT
  Age: 68 Year
  Sex: Male
  Weight: 72 kg

DRUGS (1)
  1. CLARUS ANTIFUNGAL [Suspect]
     Active Substance: TOLNAFTATE
     Indication: FUNGAL INFECTION
     Dates: start: 20190617, end: 20190617

REACTIONS (2)
  - Swelling face [None]
  - Lip swelling [None]

NARRATIVE: CASE EVENT DATE: 20190617
